FAERS Safety Report 14204055 (Version 1)
Quarter: 2017Q4

REPORT INFORMATION
  Report Type: Spontaneous
  Country: US (occurrence: US)
  Receive Date: 20171117
  Receipt Date: 20171117
  Transmission Date: 20180321
  Serious: No
  Sender: FDA-Public Use
  Company Number: None

PATIENT
  Age: 41 Year
  Sex: Female
  Weight: 65.7 kg

DRUGS (1)
  1. METOCLOPRAMIDE 10 MG [Suspect]
     Active Substance: METOCLOPRAMIDE
     Indication: NAUSEA
     Dosage: ?          QUANTITY:30 TABLET(S);?4 TIMES A DAY ORAL
     Route: 048
     Dates: start: 20171115

REACTIONS (3)
  - Nausea [None]
  - Anxiety [None]
  - Restless legs syndrome [None]

NARRATIVE: CASE EVENT DATE: 20171116
